FAERS Safety Report 5319946-5 (Version None)
Quarter: 2007Q2

REPORT INFORMATION
  Report Type: 
  Country: None (occurrence: None)
  Receive Date: 20070502
  Receipt Date: 20070425
  Transmission Date: 20071010
  Serious: Yes (Death, Hospitalization)
  Sender: FDA-Public Use
  Company Number: 144-20785-07040758

PATIENT
  Age: 69 Year
  Sex: Female

DRUGS (3)
  1. THALIDOMIDE [Suspect]
     Indication: MULTIPLE MYELOMA
     Dosage: 50 MG, 1 IN 1 D, ORAL
     Route: 048
     Dates: start: 20070215, end: 20070318
  2. VELCADE [Suspect]
     Indication: MULTIPLE MYELOMA
     Dosage: 1.3 MG, DAILY, INTRAVENOUS
     Route: 042
     Dates: start: 20070215, end: 20070319
  3. PREDNISONE TAB [Suspect]
     Indication: MULTIPLE MYELOMA

REACTIONS (3)
  - ATELECTASIS [None]
  - CARDIOPULMONARY FAILURE [None]
  - PERFORMANCE STATUS DECREASED [None]
